FAERS Safety Report 8839211 (Version 2)
Quarter: 2013Q2

REPORT INFORMATION
  Report Type: Spontaneous
  Country: NO (occurrence: NO)
  Receive Date: 20121015
  Receipt Date: 20130503
  Transmission Date: 20140414
  Serious: Yes (Other)
  Sender: FDA-Public Use
  Company Number: NO-UCBSA-068369

PATIENT
  Sex: Female

DRUGS (3)
  1. LEVETIRACETAM [Suspect]
     Indication: EPILEPSY
  2. TRILEPTAL [Suspect]
     Indication: EPILEPSY
  3. TRILEPTAL [Suspect]
     Indication: EPILEPSY
     Dosage: UNKNOWN (DOSE CHANGED IN THE FIRST TRIMESTER)

REACTIONS (2)
  - Abortion spontaneous [Unknown]
  - Maternal exposure during pregnancy [Recovered/Resolved]
